APPROVED DRUG PRODUCT: DONEPEZIL HYDROCHLORIDE
Active Ingredient: DONEPEZIL HYDROCHLORIDE
Strength: 23MG
Dosage Form/Route: TABLET;ORAL
Application: A202410 | Product #001
Applicant: HISUN PHARMACEUTICAL HANGZHOU CO LTD
Approved: Mar 24, 2017 | RLD: No | RS: No | Type: DISCN